FAERS Safety Report 7267470-5 (Version None)
Quarter: 2011Q1

REPORT INFORMATION
  Report Type: 
  Country: None (occurrence: None)
  Receive Date: 20110201
  Receipt Date: 20110128
  Transmission Date: 20110831
  Serious: Yes (Death)
  Sender: FDA-Public Use
  Company Number: DE-ASTRAZENECA-2011SE05029

PATIENT
  Age: 21 Year
  Sex: Female

DRUGS (5)
  1. CITALOPRAM [Suspect]
     Dosage: OVERDOSAGE
  2. DOMINAL [Suspect]
     Dosage: OVERDOSAGE
  3. SEROQUEL [Suspect]
     Dosage: 100X300 MG ONCE
     Route: 048
  4. DICLOFENAC [Suspect]
     Dosage: OVERDOSAGE
  5. VODKA [Suspect]

REACTIONS (5)
  - COMPLETED SUICIDE [None]
  - VOMITING [None]
  - ASPIRATION [None]
  - OVERDOSE [None]
  - GASTRIC HAEMORRHAGE [None]
